FAERS Safety Report 5489049-8 (Version None)
Quarter: 2007Q4

REPORT INFORMATION
  Report Type: 
  Country: None (occurrence: None)
  Receive Date: 20071018
  Receipt Date: 20071010
  Transmission Date: 20080405
  Serious: Yes (Hospitalization, Other)
  Sender: FDA-Public Use
  Company Number: PHBS2007JP16911

PATIENT
  Age: 82 Year
  Sex: Female

DRUGS (9)
  1. DIOVAN [Suspect]
     Indication: HYPERTENSION
     Dosage: 20 MG/DAY
     Route: 048
     Dates: start: 20070920, end: 20070926
  2. DIOVAN [Suspect]
     Dates: start: 20070927, end: 20071008
  3. AMLODIPINE [Concomitant]
     Dosage: 2.5 MG, UNK
     Route: 048
  4. SALOBEL [Concomitant]
     Dosage: 100 MG, UNK
  5. MAGMITT [Concomitant]
     Dosage: 1980 MG, UNK
     Route: 048
  6. TAZIN [Concomitant]
     Dosage: 30 MG, UNK
     Route: 048
  7. TRANSAMIN [Concomitant]
     Dosage: 750 MG, UNK
     Route: 048
  8. RHYTHMY [Concomitant]
     Dosage: 1 MG, UNK
     Route: 048
  9. MS ONSHIPPU [Concomitant]

REACTIONS (3)
  - ANAEMIA [None]
  - FAECES DISCOLOURED [None]
  - GASTROINTESTINAL HAEMORRHAGE [None]
